FAERS Safety Report 25310531 (Version 1)
Quarter: 2025Q2

REPORT INFORMATION
  Report Type: Spontaneous
  Country: TR (occurrence: TR)
  Receive Date: 20250514
  Receipt Date: 20250514
  Transmission Date: 20250717
  Serious: Yes (Life-Threatening, Hospitalization, Other)
  Sender: NOVARTIS
  Company Number: TR-002147023-NVSC2025TR077215

PATIENT
  Age: 1 Year
  Sex: Female
  Weight: 10 kg

DRUGS (8)
  1. TEGRETOL [Suspect]
     Active Substance: CARBAMAZEPINE
     Indication: Intraventricular haemorrhage neonatal
     Route: 065
     Dates: start: 20250427
  2. TEGRETOL [Suspect]
     Active Substance: CARBAMAZEPINE
     Indication: Epilepsy
  3. KEPPRA [Concomitant]
     Active Substance: LEVETIRACETAM
     Indication: Product used for unknown indication
     Route: 065
  4. PHENOBARBITAL [Concomitant]
     Active Substance: PHENOBARBITAL
     Indication: Product used for unknown indication
     Route: 065
  5. ENOXAPARIN SODIUM [Concomitant]
     Active Substance: ENOXAPARIN SODIUM
     Indication: Product used for unknown indication
     Route: 065
  6. EUTHYROX [Concomitant]
     Active Substance: LEVOTHYROXINE SODIUM
     Indication: Product used for unknown indication
     Route: 065
  7. CHOLECALCIFEROL [Concomitant]
     Active Substance: CHOLECALCIFEROL
     Indication: Product used for unknown indication
     Route: 065
  8. Vegaferon [Concomitant]
     Indication: Product used for unknown indication
     Route: 065

REACTIONS (5)
  - Thrombocytopenia [Unknown]
  - Therapeutic product effect incomplete [Unknown]
  - Contusion [Unknown]
  - Petechiae [Unknown]
  - Off label use [Unknown]

NARRATIVE: CASE EVENT DATE: 20250505
